FAERS Safety Report 8143368-5 (Version None)
Quarter: 2012Q1

REPORT INFORMATION
  Report Type: 
  Country: None (occurrence: None)
  Receive Date: 20120217
  Receipt Date: 20120206
  Transmission Date: 20120608
  Serious: Yes (Hospitalization, Other)
  Sender: FDA-Public Use
  Company Number: US-JNJFOC-20120206046

PATIENT
  Age: 79 Year
  Sex: Male

DRUGS (9)
  1. REMICADE [Suspect]
     Indication: PRODUCT USED FOR UNKNOWN INDICATION
     Route: 042
  2. GLUCOSE MONOHYDRATE [Concomitant]
     Route: 065
  3. HUMIRA [Suspect]
     Indication: CROHN'S DISEASE
     Dosage: 40 MG/0.8 ML PEN
     Route: 065
     Dates: start: 20110114
  4. ALPRAZOLAM [Concomitant]
     Route: 065
  5. METOPROLOL TARTRATE [Concomitant]
     Route: 065
  6. LOMOTIL [Suspect]
     Indication: DIARRHOEA
     Dosage: 6 PILLS DAILY
     Route: 065
  7. METAMUCIL-2 [Concomitant]
     Route: 065
  8. MEGESTROL ACETATE [Concomitant]
     Route: 065
  9. ALL OTHER THERAPEUTICS [Concomitant]
     Route: 065

REACTIONS (4)
  - DEHYDRATION [None]
  - ILEUS [None]
  - INTESTINAL STENOSIS [None]
  - DIARRHOEA [None]
